FAERS Safety Report 5866474-4 (Version None)
Quarter: 2008Q3

REPORT INFORMATION
  Report Type: 
  Country: None (occurrence: None)
  Receive Date: 20080902
  Receipt Date: 20080822
  Transmission Date: 20090109
  Serious: Yes (Hospitalization, Disabling)
  Sender: FDA-Public Use
  Company Number: PHHY2008LU19049

PATIENT
  Age: 54 Year
  Sex: Female

DRUGS (6)
  1. ZOMETA [Suspect]
     Indication: METASTASES TO BONE
     Dosage: 4 MG EVERY 4 WEEKS
  2. NOLVADEX [Concomitant]
     Dosage: UNK
  3. ARIMIDEX [Concomitant]
     Dosage: UNK
  4. FASLODEX [Concomitant]
     Dosage: UNK
  5. CHEMOTHERAPEUTICS NOS [Concomitant]
  6. RADIOTHERAPY [Concomitant]

REACTIONS (3)
  - FEMUR FRACTURE [None]
  - FOOT FRACTURE [None]
  - IMPAIRED HEALING [None]
